FAERS Safety Report 5240561-6 (Version None)
Quarter: 2007Q1

REPORT INFORMATION
  Report Type: 
  Country: None (occurrence: None)
  Receive Date: 20070219
  Receipt Date: 20070208
  Transmission Date: 20070707
  Serious: Yes (Congenital Anomaly, Other)
  Sender: FDA-Public Use
  Company Number: NLWYE608409FEB07

PATIENT
  Age: 0 Year

DRUGS (1)
  1. ENBREL [Suspect]
     Route: 065

REACTIONS (2)
  - CONGENITAL CARDIOVASCULAR ANOMALY [None]
  - TRANSMISSION OF DRUG VIA SEMEN [None]
